FAERS Safety Report 8301031-1 (Version None)
Quarter: 2012Q2

REPORT INFORMATION
  Report Type: 
  Country: None (occurrence: None)
  Receive Date: 20120420
  Receipt Date: 20120412
  Transmission Date: 20120825
  Serious: Yes (Hospitalization, Other)
  Sender: FDA-Public Use
  Company Number: FR-SANOFI-AVENTIS-2011SA025968

PATIENT
  Age: 52 Year
  Sex: Male

DRUGS (16)
  1. ARAVA [Suspect]
     Route: 048
     Dates: start: 20010301, end: 20010501
  2. ARAVA [Suspect]
     Route: 048
     Dates: start: 20010301, end: 20010501
  3. SULFASALAZINE [Concomitant]
     Indication: RHEUMATOID ARTHRITIS
     Route: 048
     Dates: start: 20001101, end: 20001201
  4. ACETAMINOPHEN [Concomitant]
     Indication: RHEUMATOID ARTHRITIS
     Route: 048
     Dates: start: 20010724
  5. METHOTREXATE [Suspect]
     Indication: RHEUMATOID ARTHRITIS
     Route: 048
     Dates: start: 19990401, end: 20000301
  6. METHOTREXATE [Suspect]
     Route: 048
     Dates: start: 20000301, end: 20000401
  7. METHOTREXATE [Suspect]
     Route: 065
     Dates: start: 20011001, end: 20011101
  8. METHOTREXATE [Suspect]
     Route: 065
     Dates: start: 20011101, end: 20020101
  9. ARAVA [Suspect]
     Route: 048
     Dates: start: 20010201, end: 20010301
  10. ARAVA [Suspect]
     Indication: RHEUMATOID ARTHRITIS
     Route: 048
     Dates: start: 20001219, end: 20010201
  11. PREDNISOLONE [Concomitant]
     Route: 048
     Dates: start: 20000101
  12. OMEPRAZOLE [Concomitant]
     Route: 048
  13. ARAVA [Suspect]
     Route: 048
     Dates: start: 20010501, end: 20011001
  14. METHOTREXATE [Suspect]
     Route: 048
     Dates: start: 20000401
  15. PREDNISOLONE [Concomitant]
     Indication: RHEUMATOID ARTHRITIS
     Route: 048
     Dates: end: 20000101
  16. INDOMETHACIN [Concomitant]
     Route: 065

REACTIONS (1)
  - ACUTE MYELOID LEUKAEMIA [None]
